FAERS Safety Report 14236837 (Version 2)
Quarter: 2018Q1

REPORT INFORMATION
  Report Type: Spontaneous
  Country: US (occurrence: US)
  Receive Date: 20171129
  Receipt Date: 20180102
  Transmission Date: 20180508
  Serious: Yes (Other)
  Sender: FDA-Public Use
  Company Number: US-AKORN PHARMACEUTICALS-2017AKN01372

PATIENT
  Age: 58 Year
  Sex: Female
  Weight: 81.18 kg

DRUGS (9)
  1. MYORISAN [Suspect]
     Active Substance: ISOTRETINOIN
     Indication: ACNE
     Dosage: 10 MG, 2X/WEEK
     Dates: start: 20170927, end: 20171116
  2. HYDROCHLOROTHIAZIDE. [Concomitant]
     Active Substance: HYDROCHLOROTHIAZIDE
  3. PHENERGAN W/ CODEINE [Concomitant]
     Active Substance: CODEINE PHOSPHATE\PROMETHAZINE HYDROCHLORIDE
  4. MYORISAN [Suspect]
     Active Substance: ISOTRETINOIN
     Indication: ACNE
     Dosage: 20 MG, 1X/WEEK
     Dates: start: 20170823, end: 20170927
  5. LOSARTAN. [Concomitant]
     Active Substance: LOSARTAN
  6. MYORISAN [Suspect]
     Active Substance: ISOTRETINOIN
     Indication: ACNE
     Dosage: 40 MG, 1X/WEEK
     Dates: start: 20170710, end: 20170823
  7. VITAMIN B12 [Concomitant]
     Active Substance: CYANOCOBALAMIN
     Route: 048
  8. PENLAC [Concomitant]
     Active Substance: CICLOPIROX
  9. MULTIVITAMIN [Concomitant]
     Active Substance: VITAMINS
     Route: 048

REACTIONS (4)
  - Depression [Recovered/Resolved]
  - Depressed mood [Recovered/Resolved]
  - Mood altered [Recovered/Resolved]
  - Off label use [Recovered/Resolved]

NARRATIVE: CASE EVENT DATE: 2017
